FAERS Safety Report 7038155-5 (Version None)
Quarter: 2010Q4

REPORT INFORMATION
  Report Type: 
  Country: None (occurrence: None)
  Receive Date: 20101011
  Receipt Date: 20101004
  Transmission Date: 20110411
  Serious: Yes (Hospitalization, Other)
  Sender: FDA-Public Use
  Company Number: US-AMGEN-QUU432128

PATIENT
  Sex: Female
  Weight: 70.1 kg

DRUGS (5)
  1. NPLATE [Suspect]
     Indication: IDIOPATHIC THROMBOCYTOPENIC PURPURA
     Dates: start: 20081013
  2. GABAPENTIN [Concomitant]
     Route: 048
  3. AMITRIPTYLINE [Concomitant]
     Route: 048
  4. LORCET-HD [Concomitant]
     Route: 048
  5. IMMU-G [Concomitant]
     Route: 042
     Dates: start: 20100722, end: 20100723

REACTIONS (2)
  - PLATELET COUNT DECREASED [None]
  - THERAPEUTIC RESPONSE DECREASED [None]
